FAERS Safety Report 14662651 (Version 1)
Quarter: 2018Q1

REPORT INFORMATION
  Report Type: Report from Study
  Country: US (occurrence: US)
  Receive Date: 20180321
  Receipt Date: 20180321
  Transmission Date: 20180509
  Serious: Yes (Death)
  Sender: FDA-Public Use
  Company Number: US-CIPLA LTD.-2018US12451

PATIENT

DRUGS (5)
  1. ETOPOSIDE. [Suspect]
     Active Substance: ETOPOSIDE
     Indication: HODGKIN^S DISEASE
     Dosage: 100 MG/M2, DAYS 1-3
     Route: 065
  2. MESNA. [Suspect]
     Active Substance: MESNA
     Indication: HODGKIN^S DISEASE
     Dosage: 5 G/M2, DAY-1
     Route: 065
  3. CARBOPLATIN. [Suspect]
     Active Substance: CARBOPLATIN
     Indication: HODGKIN^S DISEASE
     Dosage: AUC 5, DAY-1
     Route: 065
  4. IFOSFAMIDE. [Suspect]
     Active Substance: IFOSFAMIDE
     Indication: HODGKIN^S DISEASE
     Dosage: 5 G/M2, ON DAY 1
     Route: 065
  5. PANOBINOSTAT [Suspect]
     Active Substance: PANOBINOSTAT
     Indication: HODGKIN^S DISEASE
     Dosage: UNK, ONCE A DAY THREE TIMES A WEEK STARTING DAY-6 OF CYCLE 1 OF ICE
     Route: 065

REACTIONS (1)
  - Adenocarcinoma [Fatal]
